FAERS Safety Report 19904755 (Version 1)
Quarter: 2021Q3

REPORT INFORMATION
  Report Type: Spontaneous
  Country: CN (occurrence: CN)
  Receive Date: 20210930
  Receipt Date: 20210930
  Transmission Date: 20211014
  Serious: Yes (Hospitalization)
  Sender: FDA-Public Use
  Company Number: CN-PFIZER INC-202101227422

PATIENT
  Age: 43 Year
  Sex: Male

DRUGS (4)
  1. METRONIDAZOLE. [Suspect]
     Active Substance: METRONIDAZOLE
     Indication: ANTI-INFECTIVE THERAPY
     Dosage: 0.5 G, Q12H (ONCE EVERY 12 HOURS)
     Route: 041
     Dates: start: 20210911
  2. SULPERAZON [Suspect]
     Active Substance: CEFOPERAZONE SODIUM\SULBACTAM SODIUM
     Indication: PERITONITIS
     Dosage: 3 G, Q8H (ONCE EVERY 8 HOURS)
     Route: 041
     Dates: start: 20210911, end: 20210915
  3. SULPERAZON [Suspect]
     Active Substance: CEFOPERAZONE SODIUM\SULBACTAM SODIUM
     Indication: SEPSIS
  4. SODIUM CHLORIDE. [Concomitant]
     Active Substance: SODIUM CHLORIDE
     Indication: VEHICLE SOLUTION USE
     Dosage: 100 ML, Q8H (ONCE EVERY 8 HOURS)
     Route: 041
     Dates: start: 20210911, end: 20210915

REACTIONS (5)
  - White blood cell count decreased [Not Recovered/Not Resolved]
  - Haemoglobin decreased [Not Recovered/Not Resolved]
  - Neutrophil count decreased [Not Recovered/Not Resolved]
  - Off label use [Unknown]
  - Red blood cell count decreased [Not Recovered/Not Resolved]

NARRATIVE: CASE EVENT DATE: 20210911
